FAERS Safety Report 16533486 (Version 1)
Quarter: 2019Q3

REPORT INFORMATION
  Report Type: Other
  Country: CA (occurrence: CA)
  Receive Date: 20190704
  Receipt Date: 20190704
  Transmission Date: 20191004
  Serious: Yes (Death, Other)
  Sender: FDA-Public Use
  Company Number: CA-APOTEX-2019AP017398

PATIENT
  Age: 20 Year
  Sex: Female

DRUGS (4)
  1. PAZOPANIB [Suspect]
     Active Substance: PAZOPANIB
     Indication: ENDOMETRIAL STROMAL SARCOMA
     Route: 065
  2. ADRIAMYCIN [Suspect]
     Active Substance: DOXORUBICIN HYDROCHLORIDE
     Indication: ENDOMETRIAL STROMAL SARCOMA
     Route: 065
  3. IFOSFAMIDE. [Suspect]
     Active Substance: IFOSFAMIDE
     Indication: ENDOMETRIAL STROMAL SARCOMA
     Route: 065
  4. GEMCITABINE. [Suspect]
     Active Substance: GEMCITABINE
     Indication: ENDOMETRIAL STROMAL SARCOMA
     Route: 065

REACTIONS (2)
  - Product use in unapproved indication [Fatal]
  - Metastases to lung [Fatal]
